FAERS Safety Report 9727265 (Version 1)
Quarter: 2013Q4

REPORT INFORMATION
  Report Type: Spontaneous
  Country: US (occurrence: US)
  Receive Date: 20131203
  Receipt Date: 20131203
  Transmission Date: 20140711
  Serious: No
  Sender: FDA-Public Use
  Company Number: US-PFIZER INC-2013340837

PATIENT
  Age: 69 Year
  Sex: Female
  Weight: 59 kg

DRUGS (2)
  1. ADVIL [Suspect]
     Indication: HEADACHE
     Dosage: UNK, 2X/DAY
     Dates: start: 201311, end: 201311
  2. PREDNISONE [Suspect]
     Indication: MUSCLE SWELLING
     Dosage: 5 MG, DAILY

REACTIONS (1)
  - Drug ineffective [Unknown]
